FAERS Safety Report 11073592 (Version 1)
Quarter: 2015Q2

REPORT INFORMATION
  Report Type: Spontaneous
  Country: NL (occurrence: NL)
  Receive Date: 20150428
  Receipt Date: 20150428
  Transmission Date: 20150821
  Serious: Yes (Other)
  Sender: FDA-Public Use
  Company Number: NL-MYLANLABS-2015M1012859

PATIENT

DRUGS (3)
  1. CLINDAMYCINE                       /00166002/ [Concomitant]
     Indication: PRODUCT USED FOR UNKNOWN INDICATION
     Dosage: 4 TIMES DURING THE USE OF LISINOPRIL
     Route: 048
  2. IBUPROFEN. [Concomitant]
     Active Substance: IBUPROFEN
     Indication: PRODUCT USED FOR UNKNOWN INDICATION
     Dosage: ONCE DURING THE USE OF LISINOPRIL
     Route: 048
  3. LISINOPRIL MYLAN 10MG TABLETTEN [Suspect]
     Active Substance: LISINOPRIL
     Indication: PRODUCT USED FOR UNKNOWN INDICATION
     Dosage: UNK
     Route: 048
     Dates: start: 20150307, end: 20150407

REACTIONS (4)
  - Product substitution issue [Unknown]
  - Headache [Recovered/Resolved]
  - Epistaxis [Recovered/Resolved]
  - Hypertension [Recovered/Resolved]
